FAERS Safety Report 12641488 (Version 1)
Quarter: 2016Q3

REPORT INFORMATION
  Report Type: Spontaneous
  Country: US (occurrence: US)
  Receive Date: 20160810
  Receipt Date: 20160810
  Transmission Date: 20161109
  Serious: No
  Sender: FDA-Public Use
  Company Number: US-ASTRAZENECA-2016SE52897

PATIENT
  Age: 878 Month
  Sex: Female
  Weight: 53.1 kg

DRUGS (2)
  1. SYMBICORT [Suspect]
     Active Substance: BUDESONIDE\FORMOTEROL FUMARATE DIHYDRATE
     Indication: BRONCHIAL HYPERREACTIVITY
     Dosage: 80/4.5 MCG, 120 INHALATIONS, TWO PUFFS TWICE DAILY,AFTER MEAL, BATCH 2000339C00 UNKNOWN
     Route: 055
  2. SYMBICORT [Suspect]
     Active Substance: BUDESONIDE\FORMOTEROL FUMARATE DIHYDRATE
     Indication: BRONCHIAL HYPERREACTIVITY
     Dosage: USING SPARATIC OR PRN UNKNOWN
     Route: 055
     Dates: start: 2012

REACTIONS (5)
  - Fatigue [Unknown]
  - Impatience [Unknown]
  - Intentional product misuse [Unknown]
  - Device malfunction [Unknown]
  - Asthenia [Unknown]

NARRATIVE: CASE EVENT DATE: 201605
